FAERS Safety Report 4963418-4 (Version None)
Quarter: 2006Q1

REPORT INFORMATION
  Report Type: 
  Country: None (occurrence: None)
  Receive Date: 20060330
  Receipt Date: 20060322
  Transmission Date: 20060701
  Serious: Yes (Hospitalization, Other)
  Sender: FDA-Public Use
  Company Number: USA-2005-0020851

PATIENT
  Sex: Female

DRUGS (19)
  1. OXYCONTIN [Suspect]
     Indication: PAIN
     Dosage: 20 MG , DAILY
  2. BETADINE OINTMENT 10% (POVIDONE-IODINE) [Concomitant]
  3. ZOLOFT [Concomitant]
  4. VIOXX [Concomitant]
  5. PRILOSEC [Concomitant]
  6. TRAZODONE HCL [Concomitant]
  7. XANAX [Concomitant]
  8. VICODIN [Concomitant]
  9. AUGMENTIN CLAVULANATE POTASSIUM, AMOXICILLIN TRIHYDRATE) [Concomitant]
  10. SEREVENT [Concomitant]
  11. ALBUTEROL [Concomitant]
  12. WELLBUTRIN [Concomitant]
  13. DURAGESIC-100 [Concomitant]
  14. DARVOCET-N (DEXTROPROPOXYPHENE NAPSILATE) [Concomitant]
  15. LASIX [Concomitant]
  16. COLACE CAPSULES (DOCUSATE SODIUM) CAPSULE [Concomitant]
  17. ASCORBIC ACID [Concomitant]
  18. MELATONIN (MELATONIN) [Concomitant]
  19. ASPIRIN 10GR TIMED DISINTEGRATION TAB [Concomitant]

REACTIONS (65)
  - ABDOMINAL ADHESIONS [None]
  - ABDOMINAL PAIN [None]
  - ABDOMINAL PAIN UPPER [None]
  - ANOREXIA [None]
  - ANXIETY [None]
  - ARTHRALGIA [None]
  - BACK PAIN [None]
  - BALANCE DISORDER [None]
  - BREATH SOUNDS ABNORMAL [None]
  - CELLULITIS [None]
  - CHEST PAIN [None]
  - CONDITION AGGRAVATED [None]
  - CRYING [None]
  - DEEP VEIN THROMBOSIS [None]
  - DELUSIONAL DISORDER, UNSPECIFIED TYPE [None]
  - DEPRESSION [None]
  - DIARRHOEA [None]
  - DISTURBANCE IN ATTENTION [None]
  - DRUG DEPENDENCE [None]
  - DRUG INEFFECTIVE [None]
  - DRUG TOLERANCE [None]
  - DRUG WITHDRAWAL SYNDROME [None]
  - DYSPNOEA [None]
  - DYSPNOEA EXERTIONAL [None]
  - DYSTHYMIC DISORDER [None]
  - ECCHYMOSIS [None]
  - EMOTIONAL DISTRESS [None]
  - ENTERITIS [None]
  - ERYTHEMA [None]
  - EXOSTOSIS [None]
  - FALL [None]
  - FATIGUE [None]
  - FEELING ABNORMAL [None]
  - GAIT DISTURBANCE [None]
  - HEADACHE [None]
  - HYPERHIDROSIS [None]
  - INADEQUATE ANALGESIA [None]
  - INCISION SITE COMPLICATION [None]
  - INCOHERENT [None]
  - INGROWING NAIL [None]
  - INSOMNIA [None]
  - JOINT SPRAIN [None]
  - MIDDLE INSOMNIA [None]
  - MOBILITY DECREASED [None]
  - NAUSEA [None]
  - NEUROMA [None]
  - OBSESSIVE-COMPULSIVE DISORDER [None]
  - OEDEMA PERIPHERAL [None]
  - PAIN [None]
  - PAIN IN EXTREMITY [None]
  - PARAESTHESIA [None]
  - PARANOIA [None]
  - PLANTAR FASCIITIS [None]
  - POST PROCEDURAL OEDEMA [None]
  - POSTOPERATIVE ADHESION [None]
  - PULMONARY EMBOLISM [None]
  - RASH [None]
  - RESPIRATORY DISTRESS [None]
  - SPEECH DISORDER [None]
  - TARSAL TUNNEL SYNDROME [None]
  - THINKING ABNORMAL [None]
  - TINEA PEDIS [None]
  - TREMOR [None]
  - URINARY RETENTION [None]
  - WEIGHT DECREASED [None]
